FAERS Safety Report 25428301 (Version 1)
Quarter: 2025Q2

REPORT INFORMATION
  Report Type: Spontaneous
  Country: US (occurrence: US)
  Receive Date: 20250612
  Receipt Date: 20250612
  Transmission Date: 20250717
  Serious: No
  Sender: GRANULES PHARMACEUTICALS INC
  Company Number: US-GRANULES-US-2025GRASPO00269

PATIENT
  Age: 74 Year
  Sex: Male
  Weight: 73.48 kg

DRUGS (1)
  1. METFORMIN HYDROCHLORIDE [Suspect]
     Active Substance: METFORMIN HYDROCHLORIDE
     Indication: Diabetes mellitus
     Route: 048
     Dates: start: 202502

REACTIONS (4)
  - Dizziness [Recovered/Resolved]
  - Drug ineffective [Unknown]
  - Product shape issue [Unknown]
  - Product contamination [Unknown]

NARRATIVE: CASE EVENT DATE: 20250201
